FAERS Safety Report 5138191-X (Version None)
Quarter: 2006Q4

REPORT INFORMATION
  Report Type: 
  Country: None (occurrence: None)
  Receive Date: 20061030
  Receipt Date: 20060721
  Transmission Date: 20070319
  Serious: No
  Sender: FDA-Public Use
  Company Number: US-GLAXOSMITHKLINE-A0613133A

PATIENT
  Age: 77 Year
  Sex: Male

DRUGS (13)
  1. ADVAIR HFA [Suspect]
     Indication: CHRONIC OBSTRUCTIVE PULMONARY DISEASE
     Dosage: 1PUFF TWICE PER DAY
     Route: 055
     Dates: start: 20051101, end: 20060401
  2. ASPIRIN [Concomitant]
  3. VITAMIN B-12 [Concomitant]
  4. POTASSIUM ACETATE [Concomitant]
  5. VERAPAMIL [Concomitant]
  6. FUROSEMIDE [Concomitant]
  7. AVANDIA [Concomitant]
  8. DOXAZOSIN MESYLATE [Concomitant]
  9. LOVASTATIN [Concomitant]
  10. METFORMIN HCL [Concomitant]
  11. NITROGLYCERIN [Concomitant]
  12. COMBIVENT [Concomitant]
  13. DIURETIC [Concomitant]

REACTIONS (1)
  - COUGH [None]
